FAERS Safety Report 17815906 (Version 1)
Quarter: 2020Q2

REPORT INFORMATION
  Report Type: Spontaneous
  Country: US (occurrence: US)
  Receive Date: 20200522
  Receipt Date: 20200522
  Transmission Date: 20200714
  Serious: Yes (Death, Hospitalization)
  Sender: FDA-Public Use
  Company Number: None

PATIENT
  Age: 69 Year
  Sex: Female

DRUGS (16)
  1. SUCCINYLCHOLINE [Concomitant]
     Active Substance: SUCCINYLCHOLINE
     Dates: start: 20200510
  2. NALOXONE [Concomitant]
     Active Substance: NALOXONE
     Dates: start: 20200510
  3. ASPIRIN CHEWABLE [Concomitant]
     Active Substance: ASPIRIN
     Dates: start: 20200506
  4. GABAPENTIN. [Concomitant]
     Active Substance: GABAPENTIN
     Dates: start: 20200509
  5. FENTANYL. [Concomitant]
     Active Substance: FENTANYL
     Dates: start: 20200510
  6. LASIX [Concomitant]
     Active Substance: FUROSEMIDE
     Dates: start: 20200510
  7. PROPOFOL. [Concomitant]
     Active Substance: PROPOFOL
     Dates: start: 20200510
  8. ENOXAPARIN [Concomitant]
     Active Substance: ENOXAPARIN
     Dates: start: 20200505, end: 20200511
  9. METOLAZONE. [Concomitant]
     Active Substance: METOLAZONE
     Dates: start: 20200509, end: 20200509
  10. NOREPINEPHRINE. [Concomitant]
     Active Substance: NOREPINEPHRINE
     Dates: start: 20200510
  11. ETOMIDATE. [Concomitant]
     Active Substance: ETOMIDATE
     Dates: start: 20200510
  12. REMDESIVIR. [Suspect]
     Active Substance: REMDESIVIR
     Indication: COVID-19
     Dates: start: 20200507
  13. INHALED EPOPROSTENOL [Concomitant]
     Dates: start: 20200510
  14. FAMOTIDINE. [Concomitant]
     Active Substance: FAMOTIDINE
     Dates: start: 20200510
  15. INSULIN LISPRO [Concomitant]
     Active Substance: INSULIN LISPRO
     Dates: start: 20200510
  16. HEPARIN [Concomitant]
     Active Substance: HEPARIN SODIUM

REACTIONS (6)
  - Shock [None]
  - Renal failure [None]
  - Disseminated intravascular coagulation [None]
  - Paralysis [None]
  - Acidosis [None]
  - Hypoxia [None]

NARRATIVE: CASE EVENT DATE: 20200511
